FAERS Safety Report 19656689 (Version 1)
Quarter: 2021Q3

REPORT INFORMATION
  Report Type: Spontaneous
  Country: US (occurrence: US)
  Receive Date: 20210804
  Receipt Date: 20210804
  Transmission Date: 20211014
  Serious: Yes (Hospitalization, Other)
  Sender: FDA-Public Use
  Company Number: US-PFIZER INC-2021703308

PATIENT
  Age: 85 Year
  Sex: Male
  Weight: 90.72 kg

DRUGS (2)
  1. VYNDAMAX [Suspect]
     Active Substance: TAFAMIDIS
     Indication: AMYLOIDOSIS
     Dosage: 61 MG, 1X/DAY
     Route: 048
     Dates: start: 202103
  2. TOZINAMERAN. [Suspect]
     Active Substance: TOZINAMERAN
     Indication: COVID-19 IMMUNISATION
     Dosage: DOSE 2, SINGLE

REACTIONS (10)
  - Depressed level of consciousness [Unknown]
  - Dyspnoea [Unknown]
  - Fluid retention [Unknown]
  - Carbon dioxide increased [Unknown]
  - Dysphagia [Not Recovered/Not Resolved]
  - Weight fluctuation [Unknown]
  - Incorrect route of product administration [Unknown]
  - Cardiac disorder [Unknown]
  - Swelling [Unknown]
  - Feeding disorder [Unknown]

NARRATIVE: CASE EVENT DATE: 2021
